FAERS Safety Report 24132058 (Version 2)
Quarter: 2024Q3

REPORT INFORMATION
  Report Type: Report from Study
  Country: US (occurrence: US)
  Receive Date: 20240724
  Receipt Date: 20240814
  Transmission Date: 20241017
  Serious: Yes (Hospitalization)
  Sender: UCB
  Company Number: US-UCBSA-2024037277

PATIENT
  Sex: Male

DRUGS (1)
  1. BRIVARACETAM [Suspect]
     Active Substance: BRIVARACETAM
     Indication: Seizure
     Dosage: 25MG- 1T Q AM 50MG - 3TQ PM(175 MG)
     Route: 048

REACTIONS (4)
  - Respiratory disorder [Recovered/Resolved]
  - Urinary tract infection [Recovered/Resolved]
  - Bladder catheterisation [Unknown]
  - Loss of personal independence in daily activities [Unknown]

NARRATIVE: CASE EVENT DATE: 20240101
